FAERS Safety Report 23602352 (Version 2)
Quarter: 2025Q2

REPORT INFORMATION
  Report Type: Spontaneous
  Country: CZ (occurrence: CZ)
  Receive Date: 20240306
  Receipt Date: 20250526
  Transmission Date: 20250717
  Serious: Yes (Hospitalization, Other)
  Sender: BRISTOL-MYERS SQUIBB COMPANY
  Company Number: CZ-FreseniusKabi-FK202402999

PATIENT
  Age: 43 Year
  Sex: Male

DRUGS (8)
  1. PACLITAXEL [Suspect]
     Active Substance: PACLITAXEL
     Indication: Pancreatic carcinoma
     Dates: start: 202207
  2. PACLITAXEL [Suspect]
     Active Substance: PACLITAXEL
     Dates: start: 202112
  3. IRINOTECAN HYDROCHLORIDE [Suspect]
     Active Substance: IRINOTECAN HYDROCHLORIDE
     Indication: Pancreatic carcinoma
     Dates: start: 202105
  4. GEMCITABINE [Suspect]
     Active Substance: GEMCITABINE
     Indication: Pancreatic carcinoma
     Dates: start: 202112
  5. GEMCITABINE [Suspect]
     Active Substance: GEMCITABINE
     Dates: start: 202207
  6. FLUOROURACIL [Suspect]
     Active Substance: FLUOROURACIL
     Indication: Pancreatic carcinoma
     Dates: start: 202105
  7. OXALIPLATIN [Suspect]
     Active Substance: OXALIPLATIN
     Indication: Pancreatic carcinoma
     Dates: start: 202105
  8. LEUCOVORIN CALCIUM [Suspect]
     Active Substance: LEUCOVORIN CALCIUM
     Indication: Pancreatic carcinoma
     Dates: start: 202105

REACTIONS (4)
  - Deafness unilateral [Unknown]
  - Vertigo [Unknown]
  - Neutropenia [Unknown]
  - Haematotoxicity [Unknown]
